FAERS Safety Report 6745121-3 (Version None)
Quarter: 2010Q2

REPORT INFORMATION
  Report Type: 
  Country: None (occurrence: None)
  Receive Date: 20100526
  Receipt Date: 20100514
  Transmission Date: 20101027
  Serious: Yes (Hospitalization)
  Sender: FDA-Public Use
  Company Number: 231660J10USA

PATIENT
  Age: 30 Year
  Sex: Male
  Weight: 76 kg

DRUGS (3)
  1. REBIF [Suspect]
     Indication: MULTIPLE SCLEROSIS
     Dosage: 8.8 MCG, SUBCUTANEOUS; 22 MCG, SUBCUTANEOUS; 44 MCG, 3 IN 1 WK, SUBCUTANEOUS
     Route: 058
     Dates: end: 20100301
  2. REBIF [Suspect]
     Indication: MULTIPLE SCLEROSIS
     Dosage: 8.8 MCG, SUBCUTANEOUS; 22 MCG, SUBCUTANEOUS; 44 MCG, 3 IN 1 WK, SUBCUTANEOUS
     Route: 058
  3. REBIF [Suspect]
     Indication: MULTIPLE SCLEROSIS
     Dosage: 8.8 MCG, SUBCUTANEOUS; 22 MCG, SUBCUTANEOUS; 44 MCG, 3 IN 1 WK, SUBCUTANEOUS
     Route: 058
     Dates: start: 20091207

REACTIONS (7)
  - APHASIA [None]
  - HYPERHIDROSIS [None]
  - HYPOKINESIA [None]
  - INCOHERENT [None]
  - INFLUENZA LIKE ILLNESS [None]
  - PULMONARY CONGESTION [None]
  - STARING [None]
